FAERS Safety Report 8624603-3 (Version None)
Quarter: 2012Q3

REPORT INFORMATION
  Report Type: 
  Country: None (occurrence: None)
  Receive Date: 20120810
  Receipt Date: 20120223
  Transmission Date: 20120928
  Serious: Yes (Hospitalization, Other)
  Sender: FDA-Public Use
  Company Number: INT_00057_2012

PATIENT
  Age: 24 Month
  Sex: Male
  Weight: 13 kg

DRUGS (2)
  1. CEFTRIAXONE [Suspect]
     Indication: MENINGITIS
     Dosage: (100 MG/KG/DAY)
  2. VANCOMYCIN [Suspect]
     Indication: MENINGITIS
     Dosage: (65 MG/KG/DAY)

REACTIONS (6)
  - PYREXIA [None]
  - MENINGITIS [None]
  - HEADACHE [None]
  - HYPERSOMNIA [None]
  - DECREASED ACTIVITY [None]
  - URINARY RETENTION [None]
